FAERS Safety Report 9749178 (Version 1)
Quarter: 2013Q4

REPORT INFORMATION
  Report Type: Spontaneous
  Country: US (occurrence: US)
  Receive Date: 20131212
  Receipt Date: 20131212
  Transmission Date: 20140711
  Serious: No
  Sender: FDA-Public Use
  Company Number: US-INCYTE CORPORATION-2013IN002527

PATIENT
  Sex: Male
  Weight: 87.53 kg

DRUGS (1)
  1. JAKAFI [Suspect]
     Indication: SPLEEN MALFORMATION
     Dosage: 15 MG, BID
     Route: 048

REACTIONS (2)
  - Dyspnoea [Unknown]
  - Headache [Unknown]
